FAERS Safety Report 20468568 (Version 2)
Quarter: 2022Q1

REPORT INFORMATION
  Report Type: Spontaneous
  Country: US (occurrence: US)
  Receive Date: 20220214
  Receipt Date: 20220311
  Transmission Date: 20220424
  Serious: No
  Sender: FDA-Public Use
  Company Number: US-GSKCCFUS-Case-01293691_AE-75386

PATIENT
  Age: 33 Year
  Sex: Female
  Weight: 64 kg

DRUGS (1)
  1. SOTROVIMAB [Suspect]
     Active Substance: SOTROVIMAB
     Indication: Product used for unknown indication
     Dosage: 500 MG
     Dates: start: 20220210

REACTIONS (1)
  - Incorrect drug administration rate [Recovered/Resolved]

NARRATIVE: CASE EVENT DATE: 20220210
